FAERS Safety Report 7069643-3 (Version None)
Quarter: 2010Q4

REPORT INFORMATION
  Report Type: 
  Country: None (occurrence: None)
  Receive Date: 20101028
  Receipt Date: 20101022
  Transmission Date: 20110411
  Serious: Yes (Congenital Anomaly)
  Sender: FDA-Public Use
  Company Number: DE-GILEAD-2010-0032820

PATIENT
  Sex: Female
  Weight: 0.676 kg

DRUGS (3)
  1. TRUVADA [Suspect]
     Indication: HIV INFECTION
     Route: 064
     Dates: start: 20071016
  2. REYATAZ [Concomitant]
     Route: 064
     Dates: start: 20071016
  3. NORVIR [Concomitant]
     Route: 064
     Dates: start: 20061001

REACTIONS (10)
  - DEVELOPMENTAL DELAY [None]
  - HYDROCEPHALUS [None]
  - INTESTINAL PERFORATION [None]
  - INTRAVENTRICULAR HAEMORRHAGE [None]
  - MICROCEPHALY [None]
  - PATENT DUCTUS ARTERIOSUS [None]
  - PERITONITIS [None]
  - RESPIRATORY DISTRESS [None]
  - RETINOPATHY OF PREMATURITY [None]
  - STRABISMUS [None]
